FAERS Safety Report 22221094 (Version 3)
Quarter: 2023Q2

REPORT INFORMATION
  Report Type: Report from Study
  Country: US (occurrence: US)
  Receive Date: 20230418
  Receipt Date: 20230505
  Transmission Date: 20230722
  Serious: Yes (Hospitalization)
  Sender: FDA-Public Use
  Company Number: US-GBT-021716

PATIENT
  Age: 40 Year
  Sex: Male

DRUGS (6)
  1. OXBRYTA [Suspect]
     Active Substance: VOXELOTOR
     Indication: Sickle cell disease
     Dates: start: 20201124
  2. (VITAMIN C) 500 mg tablet [Concomitant]
     Indication: Product used for unknown indication
     Route: 048
     Dates: start: 20180420
  3. Colcrys 0.6 mg tablet [Concomitant]
     Indication: Product used for unknown indication
     Route: 048
     Dates: start: 20190827
  4. CYANOCOBALAMIN [Concomitant]
     Active Substance: CYANOCOBALAMIN
     Indication: Vitamin C deficiency
     Dosage: 1000 MCG
     Route: 048
     Dates: start: 20180420
  5. EPOETIN ALFA-EPBX [Concomitant]
     Active Substance: EPOETIN ALFA-EPBX
     Indication: Sickle cell disease
     Dosage: DOSAGE: 400000 U TRANSDERMAL
     Dates: start: 20200928
  6. naloxone (Narcan) 4 mg/actuation nasal spray [Concomitant]
     Indication: Overdose
     Dosage: TIME INTERVAL: AS NECESSARY: 1 SPRAY
     Dates: start: 20190320

REACTIONS (4)
  - Sickle cell anaemia with crisis [Recovered/Resolved]
  - Nausea [Recovered/Resolved]
  - Diarrhoea [Recovered/Resolved]
  - Headache [Not Recovered/Not Resolved]

NARRATIVE: CASE EVENT DATE: 20201124
